FAERS Safety Report 8415805-X (Version None)
Quarter: 2012Q2

REPORT INFORMATION
  Report Type: 
  Country: None (occurrence: None)
  Receive Date: 20120530
  Receipt Date: 20120515
  Transmission Date: 20120825
  Serious: Yes (Other)
  Sender: FDA-Public Use
  Company Number: 20120323

PATIENT
  Age: 16 Year
  Sex: Male

DRUGS (1)
  1. PAMIDRONATE DISODIUM [Suspect]
     Indication: CEREBRAL PALSY
     Dosage: INTRAVENOUS
     Route: 042

REACTIONS (1)
  - FEMUR FRACTURE [None]
